FAERS Safety Report 4800762-5 (Version None)
Quarter: 2005Q4

REPORT INFORMATION
  Report Type: 
  Country: None (occurrence: None)
  Receive Date: 20051017
  Receipt Date: 20051005
  Transmission Date: 20060501
  Serious: Yes (Hospitalization)
  Sender: FDA-Public Use
  Company Number: 2005UW15265

PATIENT
  Age: 47 Year
  Sex: Female

DRUGS (13)
  1. NEXIUM [Suspect]
     Route: 048
  2. PAROXETINE HCL [Suspect]
     Indication: OBSESSIVE-COMPULSIVE DISORDER
     Route: 048
  3. PAROXETINE HCL [Suspect]
     Indication: ANXIETY
     Route: 048
  4. PAROXETINE HCL [Suspect]
     Indication: DEPRESSION
     Route: 048
  5. PAROXETINE HCL [Suspect]
     Route: 048
     Dates: start: 20050101
  6. PAROXETINE HCL [Suspect]
     Route: 048
     Dates: start: 20050101
  7. PAROXETINE HCL [Suspect]
     Route: 048
     Dates: start: 20050101
  8. REMERON [Concomitant]
  9. ATIVAN [Concomitant]
  10. ENALAPRIL [Concomitant]
  11. METOPROLOL [Concomitant]
  12. PLAQUENIL [Concomitant]
     Dates: start: 20050301
  13. HUMIRA [Concomitant]

REACTIONS (5)
  - ABDOMINAL DISCOMFORT [None]
  - AGITATION [None]
  - DEHYDRATION [None]
  - DIARRHOEA [None]
  - DRUG WITHDRAWAL SYNDROME [None]
